FAERS Safety Report 8054641-3 (Version None)
Quarter: 2012Q1

REPORT INFORMATION
  Report Type: 
  Country: None (occurrence: None)
  Receive Date: 20120111
  Receipt Date: 20120103
  Transmission Date: 20120608
  Serious: Yes (Other)
  Sender: FDA-Public Use
  Company Number: AUR-APL-2012-00337

PATIENT
  Age: 58 Year
  Sex: Female
  Weight: 59.8 kg

DRUGS (8)
  1. EFFEXOR XR [Suspect]
     Indication: DEPRESSION
     Dosage: (75 MG,1 D),ORAL ; (112.5 MG, 1 D) ; (75 MG,1 D) ; (75 MG, 1 D) ; 112.5 MG,1 D)
     Dates: start: 20060101
  2. EFFEXOR XR [Suspect]
     Indication: DEPRESSION
     Dosage: (75 MG,1 D),ORAL ; (112.5 MG, 1 D) ; (75 MG,1 D) ; (75 MG, 1 D) ; 112.5 MG,1 D)
     Dates: start: 20100801
  3. EFFEXOR XR [Suspect]
     Indication: DEPRESSION
     Dosage: (75 MG,1 D),ORAL ; (112.5 MG, 1 D) ; (75 MG,1 D) ; (75 MG, 1 D) ; 112.5 MG,1 D)
     Dates: start: 20110301
  4. EFFEXOR XR [Suspect]
     Indication: DEPRESSION
     Dosage: (75 MG,1 D),ORAL ; (112.5 MG, 1 D) ; (75 MG,1 D) ; (75 MG, 1 D) ; 112.5 MG,1 D)
     Dates: end: 20100101
  5. PRAVASTATIN [Concomitant]
  6. VENLAFAXINE [Suspect]
     Indication: DEPRESSION
     Dosage: (75 MG,1 D)
     Dates: start: 20100701, end: 20100101
  7. NITROFURANTOIN MONO MAC (NITROFURANTOIN) [Concomitant]
  8. PROTONIX [Concomitant]

REACTIONS (2)
  - PSORIATIC ARTHROPATHY [None]
  - PRODUCT SUBSTITUTION ISSUE [None]
